FAERS Safety Report 16867205 (Version 2)
Quarter: 2020Q4

REPORT INFORMATION
  Report Type: Spontaneous
  Country: US (occurrence: US)
  Receive Date: 20190930
  Receipt Date: 20201005
  Transmission Date: 20210113
  Serious: No
  Sender: FDA-Public Use
  Company Number: US-AUROBINDO-AUR-APL-2019-043884

PATIENT
  Sex: Female

DRUGS (2)
  1. ASPIRIN. [Concomitant]
     Active Substance: ASPIRIN
     Indication: PRODUCT USED FOR UNKNOWN INDICATION
     Dosage: UNK
     Route: 065
  2. SUMATRIPTAN TABLETS 100MG [Suspect]
     Active Substance: SUMATRIPTAN
     Indication: HEADACHE
     Dosage: UNK
     Route: 048

REACTIONS (2)
  - Product substitution issue [Unknown]
  - Drug ineffective [Unknown]
